FAERS Safety Report 8834566 (Version 1)
Quarter: 2012Q4

REPORT INFORMATION
  Report Type: 
  Country: GB (occurrence: GB)
  Receive Date: 20121010
  Receipt Date: 20121010
  Transmission Date: 20130627
  Serious: Yes (Hospitalization)
  Sender: FDA-Public Use
  Company Number: GB-B.I. PHARMACEUTICALS,INC./RIDGEFIELD-2012-UK-01353UK

PATIENT
  Sex: Female

DRUGS (1)
  1. PERSANTINE [Suspect]
     Dosage: 200mg three times a day
     Route: 048

REACTIONS (1)
  - Accidental overdose [Unknown]
